FAERS Safety Report 7592767-9 (Version None)
Quarter: 2011Q3

REPORT INFORMATION
  Report Type: 
  Country: None (occurrence: None)
  Receive Date: 20110706
  Receipt Date: 20110629
  Transmission Date: 20111222
  Serious: No
  Sender: FDA-Public Use
  Company Number: US-PFIZER INC-2011145577

PATIENT
  Sex: Male
  Weight: 99.8 kg

DRUGS (1)
  1. GABAPENTIN [Suspect]
     Indication: SPINAL COLUMN STENOSIS
     Dosage: 300 MG, 10X/DAY
     Route: 048
     Dates: start: 20110628

REACTIONS (1)
  - HEADACHE [None]
